FAERS Safety Report 4576310-4 (Version None)
Quarter: 2005Q1

REPORT INFORMATION
  Report Type: 
  Country: None (occurrence: None)
  Receive Date: 20050209
  Receipt Date: 20050131
  Transmission Date: 20050727
  Serious: Yes (Other)
  Sender: FDA-Public Use
  Company Number: GB-ABBOTT-05P-167-0289380-00

PATIENT
  Age: 54 Year
  Sex: Female

DRUGS (6)
  1. HUMIRA [Suspect]
     Indication: PSORIATIC ARTHROPATHY
     Route: 058
     Dates: start: 20040929, end: 20050119
  2. TRAMADOL HCL [Concomitant]
     Indication: ANALGESIC EFFECT
  3. DICLOFENAC [Concomitant]
     Indication: DRUG USE FOR UNKNOWN INDICATION
  4. CELIPROLOL [Concomitant]
     Indication: HYPERTENSION
  5. BENDROFLUMETHIAZIDE [Concomitant]
     Indication: HYPERTENSION
  6. ACETAMINOPHEN W/ CODEINE [Concomitant]
     Indication: ANALGESIC EFFECT

REACTIONS (1)
  - ALOPECIA [None]
